FAERS Safety Report 4551398-5 (Version None)
Quarter: 2005Q1

REPORT INFORMATION
  Report Type: 
  Country: None (occurrence: None)
  Receive Date: 20050113
  Receipt Date: 20050104
  Transmission Date: 20050727
  Serious: Yes (Hospitalization, Disabling)
  Sender: FDA-Public Use
  Company Number: FR-BRISTOL-MYERS SQUIBB COMPANY-12813556

PATIENT
  Age: 69 Year
  Sex: Male

DRUGS (1)
  1. HYDREA [Suspect]
     Indication: THROMBOCYTOPENIA
     Dosage: 500 MG EVEN DAYS AND 1000 MG ODD DAYS.  DURATION 218 DAYS ?
     Route: 048
     Dates: start: 19830101, end: 20041227

REACTIONS (2)
  - PAIN [None]
  - SKIN NECROSIS [None]
